FAERS Safety Report 4382012-X (Version None)
Quarter: 2004Q2

REPORT INFORMATION
  Report Type: 
  Country: None (occurrence: None)
  Receive Date: 20040615
  Receipt Date: 20040602
  Transmission Date: 20050107
  Serious: Yes (Life-Threatening, Hospitalization)
  Sender: FDA-Public Use
  Company Number: HQWYE230603JUN04

PATIENT
  Age: 24 Year
  Sex: Male

DRUGS (9)
  1. RAPAMUNE [Suspect]
     Indication: IMMUNOSUPPRESSION
     Dosage: 3 MG 1X PER 1 DAY ORAL
     Route: 048
     Dates: start: 20040406, end: 20040510
  2. RAPAMUNE [Suspect]
     Dosage: 2 MG 1X PER 1 DAY ORAL
     Route: 048
     Dates: start: 20040510, end: 20040101
  3. RAPAMUNE [Suspect]
     Dosage: 4 MG 1X PER 1 DAY ORAL
     Route: 048
     Dates: start: 20040514
  4. PREDNISONE [Suspect]
     Dosage: 5 MG 1X PER 1 DAY ORAL
     Route: 048
     Dates: start: 20040510
  5. PREDNISONE [Suspect]
     Dosage: 250 MG 1X PER 1 DAY INTRAVENOUS
     Route: 042
     Dates: start: 20040515, end: 20040517
  6. TACROLIMUS (TACROLIMUS, ) [Suspect]
     Dosage: 2.5 MG 2X PER 1 DAY ORAL
     Route: 048
     Dates: end: 20040515
  7. MYCOPHENOLATE MOFETIL (MYCOPHENOLATE MOFETIL) [Concomitant]
  8. INSULIN [Concomitant]
  9. ACTRAPID HUMAN (INSULIN HUMAN) [Concomitant]

REACTIONS (4)
  - BLOOD CREATININE INCREASED [None]
  - BLOOD GLUCOSE INCREASED [None]
  - DRUG TOXICITY [None]
  - WOUND INFECTION STAPHYLOCOCCAL [None]
